FAERS Safety Report 16698503 (Version 2)
Quarter: 2019Q4

REPORT INFORMATION
  Report Type: Spontaneous
  Country: ZA (occurrence: ZA)
  Receive Date: 20190813
  Receipt Date: 20191119
  Transmission Date: 20200122
  Serious: Yes (Other)
  Sender: FDA-Public Use
  Company Number: ZA-JNJFOC-20190805662

PATIENT
  Age: 33 Year
  Sex: Female
  Weight: 51 kg

DRUGS (22)
  1. METOCLOPRAMIDE. [Concomitant]
     Active Substance: METOCLOPRAMIDE
     Indication: VOMITING
     Route: 048
  2. ISINIAZID [Suspect]
     Active Substance: ISONIAZID
     Indication: TUBERCULOSIS
     Route: 048
     Dates: start: 20190211, end: 20190430
  3. TERIZIDONE [Suspect]
     Active Substance: TERIZIDONE
     Indication: TUBERCULOSIS
     Route: 048
     Dates: start: 20190211, end: 20190502
  4. BEDAQUILINE [Suspect]
     Active Substance: BEDAQUILINE
     Route: 048
     Dates: start: 201905
  5. PYRAZINAMIDE. [Suspect]
     Active Substance: PYRAZINAMIDE
     Indication: TUBERCULOSIS
     Route: 065
     Dates: start: 20190211, end: 20190329
  6. NEVIRAPINE. [Suspect]
     Active Substance: NEVIRAPINE
     Indication: HIV INFECTION
     Route: 065
     Dates: start: 20190304, end: 20190430
  7. BEDAQUILINE [Suspect]
     Active Substance: BEDAQUILINE
     Route: 048
     Dates: start: 201902, end: 20190502
  8. LINEZOLID. [Suspect]
     Active Substance: LINEZOLID
     Route: 065
     Dates: start: 201905
  9. ATAZANAVIR. [Concomitant]
     Active Substance: ATAZANAVIR
     Indication: HIV INFECTION
  10. BEDAQUILINE [Suspect]
     Active Substance: BEDAQUILINE
     Indication: TUBERCULOSIS
     Route: 048
     Dates: start: 20190211, end: 201902
  11. DELAMANID [Suspect]
     Active Substance: DELAMANID
     Route: 048
     Dates: start: 201905
  12. LINEZOLID. [Suspect]
     Active Substance: LINEZOLID
     Indication: TUBERCULOSIS
     Route: 048
     Dates: start: 20190211, end: 20190502
  13. EMTRICITABINE/TENOFOVIR [Concomitant]
     Active Substance: EMTRICITABINE\TENOFOVIR
     Indication: HIV INFECTION
     Route: 065
     Dates: start: 20190304, end: 20190430
  14. DELAMANID [Suspect]
     Active Substance: DELAMANID
     Indication: TUBERCULOSIS
     Route: 048
     Dates: start: 20190313, end: 20190502
  15. CLOFAZIMINE [Suspect]
     Active Substance: CLOFAZIMINE
     Indication: TUBERCULOSIS
     Route: 048
     Dates: start: 20190211, end: 20190502
  16. CLOFAZIMINE [Suspect]
     Active Substance: CLOFAZIMINE
     Route: 065
     Dates: start: 201905
  17. EMTRICITABINE/TENOFOVIR [Concomitant]
     Active Substance: EMTRICITABINE\TENOFOVIR
     Route: 065
     Dates: start: 20190516
  18. ETHAMBUTOL [Suspect]
     Active Substance: ETHAMBUTOL HYDROCHLORIDE
     Indication: TUBERCULOSIS
     Route: 048
     Dates: start: 20190211
  19. RITONAVIR. [Concomitant]
     Active Substance: RITONAVIR
     Indication: HIV INFECTION
  20. ISINIAZID [Suspect]
     Active Substance: ISONIAZID
     Route: 048
     Dates: start: 20190513
  21. LEVOFLOXACIN. [Suspect]
     Active Substance: LEVOFLOXACIN
     Indication: TUBERCULOSIS
     Route: 048
     Dates: start: 20190211
  22. TERIZIDONE [Suspect]
     Active Substance: TERIZIDONE
     Route: 065
     Dates: start: 201905

REACTIONS (5)
  - Weight decreased [Recovering/Resolving]
  - Drug-induced liver injury [Recovering/Resolving]
  - Blood thyroid stimulating hormone increased [Unknown]
  - Arthralgia [Recovering/Resolving]
  - Hypokalaemia [Unknown]

NARRATIVE: CASE EVENT DATE: 20190312
